FAERS Safety Report 8285892-0 (Version None)
Quarter: 2012Q2

REPORT INFORMATION
  Report Type: 
  Country: None (occurrence: None)
  Receive Date: 20120414
  Receipt Date: 20111027
  Transmission Date: 20120825
  Serious: Yes (Death)
  Sender: FDA-Public Use
  Company Number: PHEH2011US013096

PATIENT
  Sex: Female

DRUGS (4)
  1. SODIUM BICARBONATE [Concomitant]
  2. PHOSLO [Concomitant]
  3. PROGRAF [Concomitant]
  4. MYFORTIC [Suspect]
     Indication: RENAL TRANSPLANT
     Dosage: 720 MG, BID
     Route: 048

REACTIONS (1)
  - DEATH [None]
